FAERS Safety Report 21486925 (Version 3)
Quarter: 2025Q1

REPORT INFORMATION
  Report Type: Spontaneous
  Country: CA (occurrence: CA)
  Receive Date: 20221020
  Receipt Date: 20250331
  Transmission Date: 20250409
  Serious: Yes (Other)
  Sender: INTERCEPT PHARMACEUTICALS
  Company Number: CA-ADVANZ PHARMA-202210006805

PATIENT
  Age: 71 Year
  Sex: Female

DRUGS (3)
  1. OCALIVA [Suspect]
     Active Substance: OBETICHOLIC ACID
     Indication: Primary biliary cholangitis
     Dosage: 5 MG, QD (OCALIVA)
     Route: 048
     Dates: start: 20190513
  2. URSO [Concomitant]
     Active Substance: URSODIOL
     Dosage: 500 MG, BID
     Route: 048
  3. URSO [Concomitant]
     Active Substance: URSODIOL
     Route: 048

REACTIONS (3)
  - Pneumonia [Unknown]
  - Hypersomnia [Unknown]
  - Product dose omission issue [Unknown]
